FAERS Safety Report 7401664-0 (Version None)
Quarter: 2011Q2

REPORT INFORMATION
  Report Type: 
  Country: None (occurrence: None)
  Receive Date: 20110408
  Receipt Date: 20110329
  Transmission Date: 20111010
  Serious: No
  Sender: FDA-Public Use
  Company Number: US-BIOGENIDEC-2011BI011884

PATIENT
  Age: 33 Year
  Sex: Female

DRUGS (3)
  1. AVONEX [Suspect]
     Indication: MULTIPLE SCLEROSIS
     Route: 030
     Dates: start: 20100922
  2. OXYCONTIN [Concomitant]
     Indication: NEURALGIA
  3. KEPPRA [Concomitant]
     Indication: NEURALGIA

REACTIONS (3)
  - NAUSEA [None]
  - HEADACHE [None]
  - POST PROCEDURAL COMPLICATION [None]
